FAERS Safety Report 5508054-6 (Version None)
Quarter: 2007Q4

REPORT INFORMATION
  Report Type: 
  Country: None (occurrence: None)
  Receive Date: 20071106
  Receipt Date: 20071102
  Transmission Date: 20080405
  Serious: Yes (Disabling, Other)
  Sender: FDA-Public Use
  Company Number: US-BRISTOL-MYERS SQUIBB COMPANY-13940093

PATIENT
  Age: 68 Year
  Sex: Male

DRUGS (13)
  1. ORENCIA FOR INJ [Suspect]
     Indication: RHEUMATOID ARTHRITIS
     Dosage: 3 DOSAGEFORM = 2 DOSES. EVENT OCCURED AFTER 2-3 INFUSION.
     Route: 042
     Dates: start: 20070816, end: 20071005
  2. METHOTREXATE [Concomitant]
  3. LASIX [Concomitant]
  4. LIPITOR [Concomitant]
  5. POTASSIUM CHLORIDE [Concomitant]
  6. ASPIRIN [Concomitant]
  7. PREDNISONE [Concomitant]
  8. GLYBURIDE [Concomitant]
  9. BENAZEPRIL HCL [Concomitant]
  10. FOLIC ACID [Concomitant]
  11. ATENOLOL [Concomitant]
  12. LANTUS [Concomitant]
  13. NITROGLYCERIN [Concomitant]

REACTIONS (1)
  - VISUAL ACUITY REDUCED [None]
